FAERS Safety Report 6582443-3 (Version None)
Quarter: 2010Q1

REPORT INFORMATION
  Report Type: 
  Country: None (occurrence: None)
  Receive Date: 20100216
  Receipt Date: 20100203
  Transmission Date: 20100710
  Serious: Yes (Other)
  Sender: FDA-Public Use
  Company Number: PHEH2010US01945

PATIENT
  Age: 65 Year
  Sex: Female

DRUGS (1)
  1. RECLAST [Suspect]

REACTIONS (3)
  - CHILLS [None]
  - PAIN [None]
  - PNEUMONIA [None]
